FAERS Safety Report 13945200 (Version 1)
Quarter: 2017Q3

REPORT INFORMATION
  Report Type: Spontaneous
  Country: NL (occurrence: NL)
  Receive Date: 20170907
  Receipt Date: 20170907
  Transmission Date: 20171128
  Serious: Yes (Other)
  Sender: FDA-Public Use
  Company Number: NL-TEVA-803081ROM

PATIENT
  Age: 66 Year
  Sex: Male

DRUGS (5)
  1. AMANTADINE. [Suspect]
     Active Substance: AMANTADINE HYDROCHLORIDE
     Indication: DYSKINESIA
     Dosage: INITIAL DOSE UNKNOWN; AUGMENTED TO 100MG TID
     Route: 065
  2. LEVODOPA, BENSERAZIDE [Suspect]
     Active Substance: BENSERAZIDE HYDROCHLORIDE\LEVODOPA
     Indication: PARKINSON^S DISEASE
     Route: 065
  3. LEVODOPA, BENSERAZIDE [Suspect]
     Active Substance: BENSERAZIDE HYDROCHLORIDE\LEVODOPA
     Dosage: BEFORE NIGHT; SLOW RELEASE
     Route: 065
  4. LEVODOPA, BENSERAZIDE [Suspect]
     Active Substance: BENSERAZIDE HYDROCHLORIDE\LEVODOPA
     Dosage: AS DISPERSIBLE TABLETS; LATER 100MG ANTE NOCTUM TID WAS FURTHER ADDED
     Route: 065
  5. ROPINIROLE. [Suspect]
     Active Substance: ROPINIROLE
     Indication: PARKINSON^S DISEASE
     Route: 065

REACTIONS (2)
  - Myoclonus [Recovered/Resolved]
  - Dyskinesia [Unknown]
